FAERS Safety Report 9467468 (Version 2)
Quarter: 2013Q3

REPORT INFORMATION
  Report Type: Report from Study
  Country: AZ (occurrence: AZ)
  Receive Date: 20130821
  Receipt Date: 20130926
  Transmission Date: 20140515
  Serious: Yes (Death, Other)
  Sender: FDA-Public Use
  Company Number: PHHY2013AZ089757

PATIENT
  Sex: Female

DRUGS (2)
  1. GLIVEC [Suspect]
     Indication: CHRONIC MYELOID LEUKAEMIA
     Dosage: 400 MG, UNK
     Route: 048
  2. GLIVEC [Suspect]
     Dosage: UNK

REACTIONS (7)
  - Ovarian cancer [Fatal]
  - Second primary malignancy [Fatal]
  - Metastases to liver [Fatal]
  - Ileus [Fatal]
  - General physical health deterioration [Unknown]
  - Acute abdomen [Unknown]
  - Intestinal haemorrhage [Unknown]
